FAERS Safety Report 10192891 (Version 1)
Quarter: 2014Q2

REPORT INFORMATION
  Report Type: Spontaneous
  Country: CN (occurrence: CN)
  Receive Date: 20140523
  Receipt Date: 20140523
  Transmission Date: 20141212
  Serious: Yes (Other)
  Sender: FDA-Public Use
  Company Number: CN-B.I. PHARMACEUTICALS,INC./RIDGEFIELD-2014-BI-23061YA

PATIENT
  Age: 56 Year
  Sex: Male
  Weight: 78 kg

DRUGS (1)
  1. HARNAL [Suspect]
     Indication: PROSTATITIS
     Dosage: 1 ANZ
     Route: 048
     Dates: start: 20130524, end: 20130526

REACTIONS (1)
  - Dermatitis [Recovered/Resolved]
